FAERS Safety Report 11532914 (Version 2)
Quarter: 2015Q3

REPORT INFORMATION
  Report Type: Spontaneous
  Country: TW (occurrence: TW)
  Receive Date: 20150921
  Receipt Date: 20150930
  Transmission Date: 20151125
  Serious: Yes (Other)
  Sender: FDA-Public Use
  Company Number: TW-PFIZER INC-2015306361

PATIENT
  Age: 81 Year
  Sex: Female

DRUGS (1)
  1. XALATAN [Suspect]
     Active Substance: LATANOPROST
     Indication: INTRAOCULAR PRESSURE INCREASED
     Dosage: ONE DROP ONCE PER DAY BEFORE SLEEP
     Route: 047

REACTIONS (4)
  - Intraocular pressure increased [Recovered/Resolved]
  - Eye inflammation [Recovered/Resolved]
  - Dark circles under eyes [Not Recovered/Not Resolved]
  - Sleep disorder [Unknown]

NARRATIVE: CASE EVENT DATE: 2014
